FAERS Safety Report 25670505 (Version 2)
Quarter: 2025Q3

REPORT INFORMATION
  Report Type: Spontaneous
  Country: US (occurrence: US)
  Receive Date: 20250812
  Receipt Date: 20250815
  Transmission Date: 20251020
  Serious: No
  Sender: BAYER HEALTHCARE LLC
  Company Number: US-BAYER-2025A106096

PATIENT

DRUGS (1)
  1. LOTRIMIN ULTRA [Suspect]
     Active Substance: BUTENAFINE HYDROCHLORIDE
     Indication: Therapeutic skin care topical
     Dosage: UNK, BID
     Route: 061

REACTIONS (1)
  - Therapeutic product effect incomplete [Not Recovered/Not Resolved]

NARRATIVE: CASE EVENT DATE: 20250801
